FAERS Safety Report 6059044-9 (Version None)
Quarter: 2009Q1

REPORT INFORMATION
  Report Type: 
  Country: None (occurrence: None)
  Receive Date: 20090130
  Receipt Date: 20090119
  Transmission Date: 20090719
  Serious: Yes (Hospitalization)
  Sender: FDA-Public Use
  Company Number: B0554793A

PATIENT
  Age: 44 Year
  Sex: Female

DRUGS (6)
  1. AMOXICILLIN + CLAVULANATE POTASSIUM [Suspect]
     Route: 065
     Dates: start: 20080804, end: 20080811
  2. REYATAZ [Concomitant]
     Dosage: 150MG TWICE PER DAY
     Route: 048
     Dates: start: 19951201
  3. TRUVADA [Concomitant]
     Dosage: 1TAB PER DAY
     Route: 048
     Dates: start: 19951201
  4. NORVIR [Concomitant]
     Dosage: 100MG PER DAY
     Route: 048
     Dates: start: 19951201
  5. SACCHAROMYCES BOULARDII [Concomitant]
     Route: 065
  6. NON STEROIDAL ANTI-INFLAMMATORY DRUG [Concomitant]
     Route: 065

REACTIONS (3)
  - ABDOMINAL PAIN [None]
  - CLOSTRIDIUM DIFFICILE COLITIS [None]
  - PYREXIA [None]
